FAERS Safety Report 9819618 (Version 1)
Quarter: 2014Q1

REPORT INFORMATION
  Report Type: Spontaneous
  Country: US (occurrence: None)
  Receive Date: 20140113
  Receipt Date: 20140113
  Transmission Date: 20141002
  Serious: Yes (Other)
  Sender: FDA-Public Use
  Company Number: CPI 5444

PATIENT
  Age: 65 Year
  Sex: Female

DRUGS (6)
  1. N-ACETYLCYSTEINE [Suspect]
     Indication: INTERSTITIAL LUNG DISEASE
  2. SPIRONOLACTONE [Concomitant]
  3. CYCLOSPORINE [Concomitant]
  4. PREDNISOLONE [Concomitant]
  5. LONG TERM OXYGEN THERAPY [Concomitant]
  6. PHYSIOTHERAPY [Concomitant]

REACTIONS (3)
  - Antisynthetase syndrome [None]
  - Pulmonary hypertension [None]
  - Gouty arthritis [None]
